FAERS Safety Report 6086999-9 (Version None)
Quarter: 2009Q1

REPORT INFORMATION
  Report Type: 
  Country: None (occurrence: None)
  Receive Date: 20090223
  Receipt Date: 20090212
  Transmission Date: 20090719
  Serious: Yes (Hospitalization, Disabling)
  Sender: FDA-Public Use
  Company Number: JP-ASTRAZENECA-2009SE00605

PATIENT
  Age: 73 Year
  Sex: Male
  Weight: 63 kg

DRUGS (10)
  1. BLOPRESS [Suspect]
     Indication: HYPERTENSION
     Route: 048
     Dates: start: 20061127
  2. BLOPRESS [Suspect]
     Route: 048
  3. BLOPRESS [Suspect]
     Route: 048
  4. CALCIUM CHANNEL BLOCKERS [Concomitant]
     Indication: HYPERTENSION
     Route: 065
  5. ACE INHIBITOR NOS [Concomitant]
     Indication: HYPERTENSION
     Route: 048
  6. DIURETICS [Concomitant]
     Indication: HYPERTENSION
     Route: 065
  7. INSULINS AND ANALOGUES [Concomitant]
     Indication: DIABETES MELLITUS
     Route: 042
  8. HMG COA REDUCTASE INHIBITORS [Concomitant]
     Indication: HYPERLIPIDAEMIA
     Route: 048
  9. ANTITHROMBOTIC AGENTS [Concomitant]
     Route: 065
  10. ANTIGOUT PREPARATIONS [Concomitant]
     Indication: GOUT
     Route: 048

REACTIONS (1)
  - DIALYSIS [None]
